FAERS Safety Report 10343625 (Version 1)
Quarter: 2014Q3

REPORT INFORMATION
  Report Type: Spontaneous
  Country: RU (occurrence: RU)
  Receive Date: 20140725
  Receipt Date: 20140725
  Transmission Date: 20150326
  Serious: Yes (Hospitalization)
  Sender: FDA-Public Use
  Company Number: RU-VIIV HEALTHCARE LIMITED-B1017513A

PATIENT
  Age: 34 Year
  Sex: Female
  Weight: 62 kg

DRUGS (3)
  1. KIVEXA [Suspect]
     Active Substance: ABACAVIR SULFATE\LAMIVUDINE
     Indication: HIV INFECTION
     Route: 065
     Dates: start: 201111, end: 201301
  2. RITONAVIR [Suspect]
     Active Substance: RITONAVIR
     Indication: HIV INFECTION
     Route: 065
     Dates: start: 201111, end: 201301
  3. INVIRASE [Suspect]
     Active Substance: SAQUINAVIR MESYLATE
     Indication: HIV INFECTION
     Route: 065
     Dates: start: 201111, end: 201301

REACTIONS (3)
  - Eosinophilia [Recovered/Resolved]
  - Drug ineffective [Recovered/Resolved]
  - Leukoplakia [Unknown]

NARRATIVE: CASE EVENT DATE: 201201
